FAERS Safety Report 9836572 (Version 1)
Quarter: 2014Q1

REPORT INFORMATION
  Report Type: Spontaneous
  Country: CA (occurrence: None)
  Receive Date: 20140116
  Receipt Date: 20140116
  Transmission Date: 20141002
  Serious: Yes (Other)
  Sender: FDA-Public Use
  Company Number: CA-JNJFOC-20131102943

PATIENT
  Sex: Female

DRUGS (1)
  1. LISTERINE ZERO MOUTHWASH CLEAN MINT (ORAL CARE PRODUCTS) LIQUID [Suspect]
     Indication: THERAPEUTIC GARGLE
     Route: 048
     Dates: start: 20131105

REACTIONS (2)
  - Product quality issue [None]
  - Dyspnoea [None]
